FAERS Safety Report 8695889 (Version 3)
Quarter: 2013Q4

REPORT INFORMATION
  Report Type: Spontaneous
  Country: US (occurrence: US)
  Receive Date: 20120801
  Receipt Date: 20131106
  Transmission Date: 20140711
  Serious: Yes (Life-Threatening)
  Sender: FDA-Public Use
  Company Number: US-009507513-1207USA010625

PATIENT
  Age: 80 Year
  Sex: Male

DRUGS (2)
  1. ZOCOR [Suspect]
     Dosage: UNK
     Route: 048
  2. BRILIQUE [Suspect]
     Route: 048

REACTIONS (2)
  - Drug interaction [Unknown]
  - Rhabdomyolysis [Unknown]
